FAERS Safety Report 17307998 (Version 4)
Quarter: 2021Q2

REPORT INFORMATION
  Report Type: Other
  Country: CA (occurrence: CA)
  Receive Date: 20200123
  Receipt Date: 20210616
  Transmission Date: 20210716
  Serious: Yes (Hospitalization, Other)
  Sender: FDA-Public Use
  Company Number: CA-ROCHE-2058070

PATIENT
  Age: 60 Year
  Sex: Female

DRUGS (51)
  1. RITUXAN [Suspect]
     Active Substance: RITUXIMAB
     Dosage: SINGLE DOSE INFUSION
     Route: 042
     Dates: start: 20200116, end: 20200713
  2. SOLU?MEDROL [Suspect]
     Active Substance: METHYLPREDNISOLONE SODIUM SUCCINATE
     Indication: PRODUCT USED FOR UNKNOWN INDICATION
     Route: 065
  3. SALBUTAMOL [Concomitant]
     Active Substance: ALBUTEROL
  4. ASPIRIN. [Concomitant]
     Active Substance: ASPIRIN
     Route: 048
  5. DILAUDID [Concomitant]
     Active Substance: HYDROMORPHONE HYDROCHLORIDE
  6. PANTOPRAZOLE [Concomitant]
     Active Substance: PANTOPRAZOLE
     Route: 048
  7. DIPHENHYDRAMINE. [Concomitant]
     Active Substance: DIPHENHYDRAMINE
     Indication: PREMEDICATION
     Route: 048
     Dates: start: 20170208
  8. METHYLPREDNISOLONE. [Concomitant]
     Active Substance: METHYLPREDNISOLONE
     Indication: PREMEDICATION
     Route: 042
     Dates: start: 20170208
  9. INSULIN [Concomitant]
     Active Substance: INSULIN NOS
  10. VENTOLIN [Concomitant]
     Active Substance: ALBUTEROL SULFATE
  11. VITAMIN D3 [Concomitant]
     Active Substance: CHOLECALCIFEROL
  12. RITUXAN [Suspect]
     Active Substance: RITUXIMAB
     Route: 042
     Dates: start: 20210119
  13. PREDNISONE. [Suspect]
     Active Substance: PREDNISONE
     Indication: GRANULOMATOSIS WITH POLYANGIITIS
  14. COVERSYL [Concomitant]
     Active Substance: PERINDOPRIL
  15. LANTUS [Concomitant]
     Active Substance: INSULIN GLARGINE
     Dosage: 36 UNITS EVERY EVENING
     Route: 058
  16. AMLODIPINE [Concomitant]
     Active Substance: AMLODIPINE BESYLATE
     Route: 048
  17. MAGNESIUM OXIDE. [Concomitant]
     Active Substance: MAGNESIUM OXIDE
     Route: 048
  18. ACETYLSALICYLIC ACID [Concomitant]
     Active Substance: ASPIRIN
     Route: 065
  19. ALLOPURINOL. [Concomitant]
     Active Substance: ALLOPURINOL
     Indication: GOUT
  20. RITUXAN [Suspect]
     Active Substance: RITUXIMAB
     Indication: GRANULOMATOSIS WITH POLYANGIITIS
     Route: 042
     Dates: start: 20170208
  21. RITUXAN [Suspect]
     Active Substance: RITUXIMAB
     Dosage: ONE TIME, OR SINGLE DOSE INFUSIONS.
     Route: 042
     Dates: start: 20190716
  22. RITUXAN [Suspect]
     Active Substance: RITUXIMAB
     Dosage: 1 DOSE, GIVEN NOT THROUGH RPAP
     Route: 042
     Dates: start: 201610, end: 201610
  23. METRONIDAZOLE. [Concomitant]
     Active Substance: METRONIDAZOLE
  24. AZITHROMYCIN ANHYDROUS. [Concomitant]
     Active Substance: AZITHROMYCIN ANHYDROUS
  25. SYNTHROID [Concomitant]
     Active Substance: LEVOTHYROXINE SODIUM
     Route: 065
  26. LASIX [Concomitant]
     Active Substance: FUROSEMIDE
     Dosage: 4 DAYS A WEEK
     Route: 048
  27. GABAPENTIN. [Concomitant]
     Active Substance: GABAPENTIN
     Route: 048
  28. HUMALOG [Concomitant]
     Active Substance: INSULIN LISPRO
     Dosage: 6 UNITS
     Route: 058
  29. LINAGLIPTIN [Concomitant]
     Active Substance: LINAGLIPTIN
     Route: 048
  30. FUROSEMIDE. [Concomitant]
     Active Substance: FUROSEMIDE
  31. RITUXAN [Suspect]
     Active Substance: RITUXIMAB
     Indication: VASCULITIS
     Dosage: PREVIOUS RITUXAN INFUSION: 16/JUL/2019
     Route: 042
     Dates: start: 20180508
  32. PANTOPRAZOLE [Concomitant]
     Active Substance: PANTOPRAZOLE
  33. SEPTRA DS [Concomitant]
     Active Substance: SULFAMETHOXAZOLE\TRIMETHOPRIM
     Route: 048
  34. COLCHICINE. [Concomitant]
     Active Substance: COLCHICINE
     Indication: GOUT
  35. HYDROMORPHONE [Concomitant]
     Active Substance: HYDROMORPHONE
  36. CIPROFLOXACIN. [Concomitant]
     Active Substance: CIPROFLOXACIN
  37. METOPROLOL. [Concomitant]
     Active Substance: METOPROLOL
     Route: 048
  38. METOPROLOL. [Concomitant]
     Active Substance: METOPROLOL
  39. METHYLPREDNISOLONE. [Concomitant]
     Active Substance: METHYLPREDNISOLONE
     Route: 042
  40. OZEMPIC [Concomitant]
     Active Substance: SEMAGLUTIDE
     Route: 058
  41. CALCIUM CARBONATE. [Concomitant]
     Active Substance: CALCIUM CARBONATE
     Route: 048
  42. PREDNISONE. [Suspect]
     Active Substance: PREDNISONE
     Indication: VASCULITIS
     Route: 048
     Dates: start: 20180904
  43. GLICLAZIDE [Concomitant]
     Active Substance: GLICLAZIDE
  44. ACETAMINOPHEN. [Concomitant]
     Active Substance: ACETAMINOPHEN
     Indication: PREMEDICATION
     Route: 048
     Dates: start: 20170208
  45. SULFATRIM [Concomitant]
     Active Substance: SULFAMETHOXAZOLE\TRIMETHOPRIM
     Dosage: ONE TABLET 3 TIMES WEEKLY
  46. RITUXAN [Suspect]
     Active Substance: RITUXIMAB
     Dosage: SINGLE DOSE
     Route: 042
     Dates: start: 20180520
  47. IMURAN [Concomitant]
     Active Substance: AZATHIOPRINE
  48. LASIX [Concomitant]
     Active Substance: FUROSEMIDE
     Dosage: 3 DAYS A WEEK
     Route: 048
  49. ATORVASTATIN [Concomitant]
     Active Substance: ATORVASTATIN
     Dosage: OD
     Route: 048
  50. ATROVENT [Concomitant]
     Active Substance: IPRATROPIUM BROMIDE
  51. IRBESARTAN. [Concomitant]
     Active Substance: IRBESARTAN

REACTIONS (39)
  - Contusion [Not Recovered/Not Resolved]
  - Cushingoid [Unknown]
  - Red blood cell count increased [Unknown]
  - Protein total increased [Unknown]
  - C-reactive protein increased [Recovering/Resolving]
  - Blood creatinine increased [Recovering/Resolving]
  - Weight increased [Unknown]
  - Dyspnoea [Not Recovered/Not Resolved]
  - Musculoskeletal stiffness [Unknown]
  - Contusion [Unknown]
  - Blood albumin decreased [Not Recovered/Not Resolved]
  - Eosinophil count increased [Unknown]
  - Renal vasculitis [Unknown]
  - Cataract [Unknown]
  - Granulomatosis with polyangiitis [Recovering/Resolving]
  - Renal impairment [Unknown]
  - Dehydration [Unknown]
  - Oedema [Unknown]
  - Vitreous detachment [Unknown]
  - Proteinuria [Not Recovered/Not Resolved]
  - White blood cell count increased [Unknown]
  - Mean cell volume decreased [Unknown]
  - Monocyte count increased [Unknown]
  - Blood pressure diastolic abnormal [Unknown]
  - Acute kidney injury [Recovering/Resolving]
  - Mean cell haemoglobin concentration decreased [Unknown]
  - Red cell distribution width increased [Unknown]
  - Off label use [Unknown]
  - Herpes zoster [Unknown]
  - Hypoglycaemia [Recovering/Resolving]
  - Blood glucose increased [Unknown]
  - Arthralgia [Unknown]
  - Blood osmolarity decreased [Unknown]
  - Musculoskeletal pain [Recovering/Resolving]
  - Vasculitis [Unknown]
  - Episcleritis [Recovering/Resolving]
  - Blood pressure systolic increased [Unknown]
  - Neutrophil count increased [Unknown]
  - Intentional product use issue [Unknown]

NARRATIVE: CASE EVENT DATE: 201610
